FAERS Safety Report 16500888 (Version 1)
Quarter: 2019Q3

REPORT INFORMATION
  Report Type: Spontaneous
  Country: US (occurrence: US)
  Receive Date: 20190628
  Receipt Date: 20190628
  Transmission Date: 20191004
  Serious: Yes (Life-Threatening)
  Sender: FDA-Public Use
  Company Number: None

PATIENT
  Age: 52 Year
  Sex: Female

DRUGS (17)
  1. DICOFENAC SODIUM GEL [Concomitant]
  2. TIZANIDINE. [Concomitant]
     Active Substance: TIZANIDINE
  3. ZOLPIDEM [Concomitant]
     Active Substance: ZOLPIDEM TARTRATE
  4. ALPRAZOLAM. [Concomitant]
     Active Substance: ALPRAZOLAM
  5. EZETIMIBE. [Concomitant]
     Active Substance: EZETIMIBE
  6. LINZESS [Concomitant]
     Active Substance: LINACLOTIDE
  7. URSODIOL. [Concomitant]
     Active Substance: URSODIOL
  8. COSENTYX [Suspect]
     Active Substance: SECUKINUMAB
     Indication: PSORIATIC ARTHROPATHY
     Dosage: ?          OTHER FREQUENCY:EVERY 4 WEEKS;?
     Route: 058
     Dates: start: 20190506, end: 20190613
  9. CYCLOPENTOLATE. [Concomitant]
     Active Substance: CYCLOPENTOLATE
  10. BUPROPION. [Concomitant]
     Active Substance: BUPROPION
  11. TRAZODONE [Concomitant]
     Active Substance: TRAZODONE HYDROCHLORIDE
  12. TRAMADOL. [Concomitant]
     Active Substance: TRAMADOL
  13. AMITRIPTYLINE [Concomitant]
     Active Substance: AMITRIPTYLINE
  14. OTEZLA [Concomitant]
     Active Substance: APREMILAST
  15. ESOMEPRAZOLE DR [Concomitant]
     Active Substance: ESOMEPRAZOLE
  16. FLUTICASONE. [Concomitant]
     Active Substance: FLUTICASONE
  17. DUREZOL [Concomitant]
     Active Substance: DIFLUPREDNATE

REACTIONS (1)
  - Pharyngeal swelling [None]

NARRATIVE: CASE EVENT DATE: 20190614
